FAERS Safety Report 6198108-6 (Version None)
Quarter: 2009Q2

REPORT INFORMATION
  Report Type: 
  Country: None (occurrence: None)
  Receive Date: 20090514
  Receipt Date: 20080625
  Transmission Date: 20091009
  Serious: Yes (Other)
  Sender: FDA-Public Use
  Company Number: 49935

PATIENT
  Age: 49 Year
  Sex: Female

DRUGS (1)
  1. MITOMYCIN [Suspect]
     Indication: ANAL CANCER
     Dosage: 18MG IV PUSH EVERY 3 WEEKS - 2 DOSES OF PR
     Route: 042
     Dates: start: 20080310, end: 20080407

REACTIONS (1)
  - PULMONARY TOXICITY [None]
